APPROVED DRUG PRODUCT: NEXTERONE
Active Ingredient: AMIODARONE HYDROCHLORIDE
Strength: 50MG/ML **Federal Register determination that product was not discontinued or withdrawn for safety or effectiveness reasons**
Dosage Form/Route: INJECTABLE;INJECTION
Application: N022325 | Product #001
Applicant: BAXTER HEALTHCARE CORP
Approved: Dec 24, 2008 | RLD: Yes | RS: No | Type: DISCN

PATENTS:
Patent 7635773 | Expires: Mar 13, 2029